FAERS Safety Report 20130896 (Version 2)
Quarter: 2021Q4

REPORT INFORMATION
  Report Type: Spontaneous
  Country: CH (occurrence: CH)
  Receive Date: 20211130
  Receipt Date: 20211210
  Transmission Date: 20220303
  Serious: Yes (Hospitalization, Other)
  Sender: FDA-Public Use
  Company Number: CH-009507513-2111CHE009914

PATIENT
  Age: 64 Year
  Sex: Male

DRUGS (1)
  1. PEMBROLIZUMAB [Suspect]
     Active Substance: PEMBROLIZUMAB
     Indication: Malignant melanoma
     Dosage: TWO CYCLES

REACTIONS (3)
  - Immune-mediated myocarditis [Recovering/Resolving]
  - Immune-mediated hepatitis [Unknown]
  - Immune-mediated myositis [Unknown]
